FAERS Safety Report 18113986 (Version 2)
Quarter: 2020Q3

REPORT INFORMATION
  Report Type: Spontaneous
  Country: US (occurrence: US)
  Receive Date: 20200805
  Receipt Date: 20200824
  Transmission Date: 20201103
  Serious: No
  Sender: FDA-Public Use
  Company Number: US-GLENMARK PHARMACEUTICALS-2020GMK048289

PATIENT

DRUGS (1)
  1. ACAMPROSATE CALCIUM DELAYED RELEASE TABLETS [Suspect]
     Active Substance: ACAMPROSATE CALCIUM
     Indication: PRODUCT USED FOR UNKNOWN INDICATION
     Dosage: 666 MILLIGRAM, TID (TWO TABLETS, THREE TIMES DAILY)
     Route: 048

REACTIONS (4)
  - Dizziness [Unknown]
  - Product dose omission issue [Unknown]
  - Drug ineffective [Unknown]
  - Abdominal discomfort [Unknown]
